FAERS Safety Report 5425645-1 (Version None)
Quarter: 2007Q3

REPORT INFORMATION
  Report Type: 
  Country: None (occurrence: None)
  Receive Date: 20070824
  Receipt Date: 20070813
  Transmission Date: 20080115
  Serious: Yes (Other)
  Sender: FDA-Public Use
  Company Number: US-PFIZER INC-2007068086

PATIENT
  Sex: Male
  Weight: 90.7 kg

DRUGS (14)
  1. LYRICA [Suspect]
     Indication: NEURALGIA
  2. LEVAQUIN [Concomitant]
  3. DAPTOMYCIN [Concomitant]
  4. METHADONE HCL [Concomitant]
  5. SEROMYCIN [Concomitant]
  6. NEURONTIN [Concomitant]
  7. LOVENOX [Concomitant]
  8. TEGRETOL [Concomitant]
  9. AMBIEN [Concomitant]
  10. LEXAPRO [Concomitant]
  11. NEXIUM [Concomitant]
  12. NORCO [Concomitant]
  13. VALIUM [Concomitant]
  14. TRAZODONE HCL [Concomitant]

REACTIONS (11)
  - ARTHRALGIA [None]
  - DYSKINESIA [None]
  - GAIT DISTURBANCE [None]
  - INSOMNIA [None]
  - LIMB OPERATION [None]
  - MUSCLE SPASMS [None]
  - PAIN IN EXTREMITY [None]
  - STAPHYLOCOCCAL INFECTION [None]
  - UNEVALUABLE EVENT [None]
  - URINARY INCONTINENCE [None]
  - WEIGHT INCREASED [None]
